FAERS Safety Report 10737919 (Version 1)
Quarter: 2015Q1

REPORT INFORMATION
  Report Type: Spontaneous
  Country: US (occurrence: US)
  Receive Date: 20150126
  Receipt Date: 20150126
  Transmission Date: 20150721
  Serious: No
  Sender: FDA-Public Use
  Company Number: US-SA-2014SA120408

PATIENT
  Sex: Male

DRUGS (2)
  1. LASIX [Suspect]
     Active Substance: FUROSEMIDE
     Dosage: STRENGTH : 20 MG, 4 TIMES A DAY
     Route: 065
  2. LASIX [Suspect]
     Active Substance: FUROSEMIDE
     Dosage: STRENGTH  ; 80 MG
     Route: 065

REACTIONS (2)
  - Product quality issue [Unknown]
  - Choking sensation [Recovered/Resolved]
